FAERS Safety Report 4686942-0 (Version None)
Quarter: 2005Q2

REPORT INFORMATION
  Report Type: 
  Country: None (occurrence: None)
  Receive Date: 20050609
  Receipt Date: 20050405
  Transmission Date: 20051028
  Serious: Yes (Disabling, Other)
  Sender: FDA-Public Use
  Company Number: GB-MERCK-0504GBR00037

PATIENT
  Age: 34 Year
  Sex: Female

DRUGS (7)
  1. HYDROCORTONE [Suspect]
     Route: 048
     Dates: start: 19880101, end: 19910101
  2. HYDROCORTONE [Suspect]
     Route: 048
     Dates: start: 19910101
  3. HYDROCORTONE [Suspect]
     Route: 048
  4. HYDROCORTONE [Suspect]
     Route: 048
     Dates: start: 20050101
  5. LEVOTHYROXINE SODIUM [Concomitant]
     Route: 065
  6. DESMOPRESSIN [Concomitant]
     Route: 065
  7. [THERAPY UNSPECIFIED] [Concomitant]
     Route: 065

REACTIONS (28)
  - ASTHENIA [None]
  - BEDRIDDEN [None]
  - BINGE EATING [None]
  - CHOLECYSTECTOMY [None]
  - CHRONIC FATIGUE SYNDROME [None]
  - CONVULSION [None]
  - DEHYDRATION [None]
  - DIABETES INSIPIDUS [None]
  - DIFFICULTY IN WALKING [None]
  - FATIGUE [None]
  - GALLBLADDER DISORDER [None]
  - GENERAL SYMPTOM [None]
  - HEADACHE [None]
  - HIATUS HERNIA [None]
  - IMMUNE SYSTEM DISORDER [None]
  - INTERVERTEBRAL DISC PROTRUSION [None]
  - MEMORY IMPAIRMENT [None]
  - NASOPHARYNGITIS [None]
  - OEDEMA PERIPHERAL [None]
  - OSTEOPOROSIS [None]
  - PARAESTHESIA [None]
  - PRESCRIBED OVERDOSE [None]
  - PUPILLARY DISORDER [None]
  - SPINAL OSTEOARTHRITIS [None]
  - VERTIGO [None]
  - VIRAL INFECTION [None]
  - VOMITING [None]
  - WEIGHT INCREASED [None]
